FAERS Safety Report 12901266 (Version 2)
Quarter: 2016Q4

REPORT INFORMATION
  Report Type: Spontaneous
  Country: US (occurrence: US)
  Receive Date: 20161101
  Receipt Date: 20161209
  Transmission Date: 20170207
  Serious: Yes (Death)
  Sender: FDA-Public Use
  Company Number: US-LUNDBECK-DKLU2021619

PATIENT
  Age: 67 Year
  Sex: Male

DRUGS (3)
  1. NORTHERA [Suspect]
     Active Substance: DROXIDOPA
     Indication: AUTONOMIC NEUROPATHY
     Route: 048
     Dates: start: 20160919
  2. NORTHERA [Suspect]
     Active Substance: DROXIDOPA
     Dosage: TITRATION A SCHEDULE COMPLETE
     Route: 048
     Dates: start: 20160920, end: 20161023
  3. NORTHERA [Suspect]
     Active Substance: DROXIDOPA
     Route: 065
     Dates: start: 20160920, end: 20161001

REACTIONS (2)
  - Cardiac failure congestive [Fatal]
  - Dyspnoea [Unknown]

NARRATIVE: CASE EVENT DATE: 20161023
